FAERS Safety Report 9381709 (Version 1)
Quarter: 2013Q3

REPORT INFORMATION
  Report Type: Spontaneous
  Country: US (occurrence: US)
  Receive Date: 20130703
  Receipt Date: 20130703
  Transmission Date: 20140515
  Serious: No
  Sender: FDA-Public Use
  Company Number: US-BAYER-2013-081042

PATIENT
  Age: 60 Year
  Sex: Female
  Weight: 80.73 kg

DRUGS (3)
  1. ALEVE CAPLET [Suspect]
     Indication: ARTHRITIS
     Dosage: 1 DF, PRN
     Route: 048
     Dates: start: 201306, end: 20130625
  2. KEPPRA [Concomitant]
  3. VITAMIN D [Concomitant]

REACTIONS (1)
  - Drug ineffective [None]
